FAERS Safety Report 6845314-0 (Version None)
Quarter: 2010Q3

REPORT INFORMATION
  Report Type: 
  Country: None (occurrence: None)
  Receive Date: 20100715
  Receipt Date: 20071213
  Transmission Date: 20110219
  Serious: No
  Sender: FDA-Public Use
  Company Number: US-PFIZER INC-2007070030

PATIENT
  Sex: Male
  Weight: 90.7 kg

DRUGS (3)
  1. CHANTIX [Suspect]
     Indication: SMOKING CESSATION THERAPY
     Route: 048
     Dates: start: 20070501
  2. LEXAPRO [Concomitant]
     Indication: DEPRESSION
     Route: 048
     Dates: start: 20070819
  3. WELLBUTRIN [Concomitant]
     Dates: end: 20070819

REACTIONS (6)
  - ANXIETY [None]
  - DEPRESSION [None]
  - DYSGEUSIA [None]
  - DYSPHAGIA [None]
  - SCREAMING [None]
  - TONGUE COATED [None]
